FAERS Safety Report 6087291 (Version 9)
Quarter: 2013Q1

REPORT INFORMATION
  Report Type: Spontaneous
  Country: US (occurrence: US)
  Receive Date: 20060721
  Receipt Date: 20130114
  Transmission Date: 20140127
  Serious: Yes (Hospitalization, Other)
  Sender: FDA-Public Use
  Company Number: PHEH2006US08868

PATIENT
  Age: 69 None
  Sex: Female

DRUGS (50)
  1. ZOMETA [Suspect]
  2. FOSAMAX [Suspect]
     Route: 048
  3. ARIMIDEX ^ASTRAZENECA^ [Concomitant]
  4. TAMOXIFEN [Concomitant]
  5. ANUSOL                                  /NET/ [Concomitant]
  6. ABRAXANE [Concomitant]
  7. HERCEPTIN ^GENENTECH^ [Concomitant]
  8. LASIX [Concomitant]
  9. PREDNISONE [Concomitant]
  10. MAXAIR [Concomitant]
  11. INFLUENZA VACCINE [Concomitant]
  12. RADIATION THERAPY [Concomitant]
  13. CHEMOTHERAPEUTICS NOS [Concomitant]
  14. TYLENOL WITH CODEINE [Concomitant]
  15. TAXOL [Concomitant]
  16. KEFZOL [Concomitant]
  17. ANCEF [Concomitant]
  18. VERSED [Concomitant]
  19. FENTANYL [Concomitant]
  20. VICODIN [Concomitant]
  21. SENSORCAINE [Concomitant]
  22. LEVAQUIN [Concomitant]
  23. HEPARIN [Concomitant]
  24. VANCOMYCIN [Concomitant]
  25. BENADRYL /OLD FORM/ [Concomitant]
  26. XYLOCAINE [Concomitant]
  27. NYSTATIN [Concomitant]
  28. VALTREX [Concomitant]
  29. MORPHINE [Concomitant]
  30. ATIVAN [Concomitant]
  31. DECADRON                                /CAN/ [Concomitant]
  32. TYLENOL [Concomitant]
  33. CATHFLO ACTIVASE [Concomitant]
  34. LOVENOX [Concomitant]
  35. CHLORASEPTIC SORE THROAT SPRAY [Concomitant]
  36. AFRIN NASAL SPRAY [Concomitant]
  37. CLEOCIN [Concomitant]
  38. FLOXIN ^DAIICHI^ [Concomitant]
  39. PERCOCET [Concomitant]
  40. ZOFRAN [Concomitant]
  41. BACTRIM DS [Concomitant]
  42. DARVOCET-N [Concomitant]
  43. COMPAZINE [Concomitant]
     Dosage: 10 MG, Q6H
     Route: 048
  44. SENOKOT-S [Concomitant]
  45. OXYGEN [Concomitant]
  46. HYDROCORTISONE [Concomitant]
     Indication: HAEMORRHOIDS
     Dosage: 25 MG, BID
     Route: 054
  47. KYTRIL [Concomitant]
     Dosage: 1 MG, Q12H PRN
     Route: 048
     Dates: start: 20070221
  48. DULCOLAX [Concomitant]
     Dosage: 1 DF, QD
     Route: 054
     Dates: start: 20070228
  49. PEPCID [Concomitant]
     Dosage: 20 MG, QD
     Route: 048
     Dates: start: 20070228
  50. MILK OF MAGNESIA [Concomitant]
     Indication: CONSTIPATION
     Dosage: 30 MG, QD
     Dates: start: 20070226

REACTIONS (72)
  - Osteonecrosis of jaw [Unknown]
  - Injury [Not Recovered/Not Resolved]
  - Pain [Not Recovered/Not Resolved]
  - Tooth abscess [Unknown]
  - Osteomyelitis [Unknown]
  - Anxiety [Not Recovered/Not Resolved]
  - Oral pain [Unknown]
  - Mouth haemorrhage [Unknown]
  - Gingival swelling [Unknown]
  - Toothache [Unknown]
  - Dental caries [Unknown]
  - Wound [Unknown]
  - Hypophagia [Unknown]
  - Oral mucosal erythema [Unknown]
  - Dysgeusia [Unknown]
  - Paraesthesia [Unknown]
  - Swelling face [Unknown]
  - Bone loss [Unknown]
  - Bone lesion [Unknown]
  - Primary sequestrum [Unknown]
  - Uterine leiomyoma [Unknown]
  - Endometrial disorder [Unknown]
  - Walking aid user [Unknown]
  - Ligament sprain [Unknown]
  - Pharyngitis [Unknown]
  - Sinusitis [Unknown]
  - Fall [Unknown]
  - Skeletal injury [Unknown]
  - Pleural effusion [Recovered/Resolved]
  - Dyspnoea exertional [Unknown]
  - Interstitial lung disease [Unknown]
  - Lung infiltration [Unknown]
  - Hypoventilation [Unknown]
  - Spinal compression fracture [Unknown]
  - Rash [Unknown]
  - Breast cancer recurrent [Unknown]
  - Mass [Unknown]
  - Metastases to central nervous system [Not Recovered/Not Resolved]
  - Rectal fissure [Unknown]
  - Urinary tract infection [Unknown]
  - Pneumonia [Unknown]
  - Bronchitis [Unknown]
  - Hypoxia [Unknown]
  - Pneumothorax [Unknown]
  - Haemangioma of liver [Unknown]
  - Malignant neoplasm progression [Unknown]
  - Constipation [Unknown]
  - Haemorrhoids [Unknown]
  - Painful defaecation [Unknown]
  - Rectal haemorrhage [Unknown]
  - Diarrhoea [Unknown]
  - Myocardial infarction [Unknown]
  - Bundle branch block left [Unknown]
  - Pericardial effusion [Unknown]
  - Speech disorder [Unknown]
  - Cyst [Unknown]
  - Balance disorder [Unknown]
  - Metastases to spine [Unknown]
  - Cardiomegaly [Unknown]
  - Device related infection [Unknown]
  - Bronchial neoplasm [Unknown]
  - Pain in extremity [Unknown]
  - Joint swelling [Unknown]
  - Local swelling [Unknown]
  - Foot fracture [Unknown]
  - Swelling [Unknown]
  - Infection [Unknown]
  - Atelectasis [Unknown]
  - Splenic granuloma [Unknown]
  - Visual impairment [Unknown]
  - Osteoporosis [Unknown]
  - Bacterial infection [Unknown]
